FAERS Safety Report 13749121 (Version 1)
Quarter: 2017Q3

REPORT INFORMATION
  Report Type: Spontaneous
  Country: IT (occurrence: IT)
  Receive Date: 20170713
  Receipt Date: 20170713
  Transmission Date: 20171127
  Serious: Yes (Other)
  Sender: FDA-Public Use
  Company Number: IT-PFIZER INC-2017297672

PATIENT
  Age: 18 Year
  Sex: Female
  Weight: 55 kg

DRUGS (3)
  1. METHOTREXATE. [Suspect]
     Active Substance: METHOTREXATE
     Indication: PSORIATIC ARTHROPATHY
     Dosage: UNK UNK, 1X/DAY
     Route: 048
     Dates: start: 200501, end: 200506
  2. CORTISONE [Concomitant]
     Active Substance: CORTISONE\HYDROCORTISONE
     Indication: PSORIATIC ARTHROPATHY
     Dosage: UNK UNK, 1X/DAY
     Route: 048
     Dates: start: 200501, end: 200506
  3. NSAIDS [Concomitant]
     Active Substance: UNSPECIFIED INGREDIENT
     Indication: PSORIATIC ARTHROPATHY
     Dosage: UNK UNK, 1X/DAY
     Route: 048
     Dates: start: 200501, end: 200506

REACTIONS (8)
  - Nausea [Recovered/Resolved]
  - Gastrointestinal pain [Recovered/Resolved]
  - Abdominal pain upper [Recovered/Resolved]
  - Fatigue [Recovered/Resolved]
  - Pyrexia [Recovered/Resolved]
  - Vomiting [Recovered/Resolved]
  - Arthralgia [Recovered/Resolved]
  - Nasopharyngitis [Recovered/Resolved]

NARRATIVE: CASE EVENT DATE: 200501
